FAERS Safety Report 19235183 (Version 2)
Quarter: 2023Q4

REPORT INFORMATION
  Report Type: Report from Study
  Country: CA (occurrence: CA)
  Receive Date: 20210509
  Receipt Date: 20231206
  Transmission Date: 20240109
  Serious: Yes (Other)
  Sender: FDA-Public Use
  Company Number: CA-CELLTRION INC.-2021CA006090

PATIENT

DRUGS (21)
  1. RITUXIMAB [Suspect]
     Active Substance: RITUXIMAB
     Indication: Systemic lupus erythematosus
     Dosage: 500 MILLIGRAM
     Route: 041
  2. RITUXIMAB [Suspect]
     Active Substance: RITUXIMAB
     Dosage: 1000 MILLIGRAM
     Route: 041
  3. MYCOPHENOLATE MOFETIL [Suspect]
     Active Substance: MYCOPHENOLATE MOFETIL
     Indication: Systemic lupus erythematosus
     Route: 065
  4. METHOTREXATE [Suspect]
     Active Substance: METHOTREXATE
     Indication: Systemic lupus erythematosus
     Route: 065
  5. RITUXIMAB [Suspect]
     Active Substance: RITUXIMAB
     Indication: Product used for unknown indication
     Route: 065
  6. ASPIRIN [Concomitant]
     Active Substance: ASPIRIN
  7. AMITRIPTYLINE [Concomitant]
     Active Substance: AMITRIPTYLINE
  8. AZATHIOPRINE [Concomitant]
     Active Substance: AZATHIOPRINE
  9. AZATHIOPRINE [Concomitant]
     Active Substance: AZATHIOPRINE
  10. BIOTIN [Concomitant]
     Active Substance: BIOTIN
  11. CELEBREX [Concomitant]
     Active Substance: CELECOXIB
  12. ESCITALOPRAM [Concomitant]
     Active Substance: ESCITALOPRAM OXALATE
  13. HYDROXYCHLOROQUINE SULFATE [Concomitant]
     Active Substance: HYDROXYCHLOROQUINE SULFATE
  14. IRON [Concomitant]
     Active Substance: IRON
  15. LYSINE [Concomitant]
     Active Substance: LYSINE
  16. NAPROXEN [Concomitant]
     Active Substance: NAPROXEN
  17. DOCONEXENT\ICOSAPENT [Concomitant]
     Active Substance: DOCONEXENT\ICOSAPENT
  18. OMEPRAZOLE [Concomitant]
     Active Substance: OMEPRAZOLE
  19. PREDNISONE [Concomitant]
     Active Substance: PREDNISONE
  20. VITAMIN D3 [Concomitant]
     Active Substance: CHOLECALCIFEROL
  21. ZOPICLONE [Concomitant]
     Active Substance: ZOPICLONE

REACTIONS (20)
  - Cerebral disorder [Unknown]
  - Muscle atrophy [Unknown]
  - Pigmentation disorder [Unknown]
  - Pericardial calcification [Unknown]
  - Total lung capacity decreased [Unknown]
  - Oxygen saturation decreased [Unknown]
  - Loss of personal independence in daily activities [Unknown]
  - Myocardial calcification [Unknown]
  - Livedo reticularis [Unknown]
  - Vasculitis [Unknown]
  - Pain [Unknown]
  - Heart rate increased [Unknown]
  - Dyspnoea [Unknown]
  - Asthenia [Unknown]
  - Alopecia [Unknown]
  - Rash [Unknown]
  - Inflammation [Unknown]
  - Drug ineffective [Unknown]
  - Off label use [Unknown]
  - Intentional product use issue [Unknown]
